FAERS Safety Report 5485009-1 (Version None)
Quarter: 2007Q4

REPORT INFORMATION
  Report Type: 
  Country: None (occurrence: None)
  Receive Date: 20071015
  Receipt Date: 20071004
  Transmission Date: 20080405
  Serious: Yes (Other)
  Sender: FDA-Public Use
  Company Number: PHBS2007JP16101

PATIENT
  Age: 53 Year
  Sex: Female

DRUGS (2)
  1. DICLOFENAC SODIUM [Suspect]
     Indication: ARTHRALGIA
     Route: 054
  2. PREDNISOLONE [Concomitant]
     Indication: ARTHRALGIA
     Dosage: 5 MG, UNK
     Dates: start: 19950501

REACTIONS (11)
  - BACK PAIN [None]
  - CARDIAC FAILURE [None]
  - DYSPNOEA EXERTIONAL [None]
  - MALAISE [None]
  - MOUTH HAEMORRHAGE [None]
  - OEDEMA PERIPHERAL [None]
  - PERICARDIAL EFFUSION [None]
  - PERICARDITIS [None]
  - PLATELET COUNT DECREASED [None]
  - RASH GENERALISED [None]
  - THROMBOTIC THROMBOCYTOPENIC PURPURA [None]
